FAERS Safety Report 22394925 (Version 1)
Quarter: 2023Q2

REPORT INFORMATION
  Report Type: Spontaneous
  Country: US (occurrence: US)
  Receive Date: 20230601
  Receipt Date: 20230601
  Transmission Date: 20230721
  Serious: Yes (Other)
  Sender: FDA-Public Use
  Company Number: US-APIL-2311342US

PATIENT
  Sex: Male

DRUGS (1)
  1. VRAYLAR [Suspect]
     Active Substance: CARIPRAZINE
     Indication: Bipolar I disorder
     Dosage: UNK
     Route: 048
     Dates: start: 202303

REACTIONS (6)
  - Suicide attempt [Unknown]
  - Self-injurious ideation [Unknown]
  - Tachyphrenia [Unknown]
  - Aggression [Unknown]
  - Anxiety [Unknown]
  - Irritability [Unknown]
